FAERS Safety Report 4359791-0 (Version None)
Quarter: 2004Q2

REPORT INFORMATION
  Report Type: 
  Country: None (occurrence: None)
  Receive Date: 20040518
  Receipt Date: 20040428
  Transmission Date: 20050107
  Serious: Yes (Life-Threatening)
  Sender: FDA-Public Use
  Company Number: FR-GLAXOSMITHKLINE-B0331318A

PATIENT
  Age: 11 Year
  Sex: Male
  Weight: 40 kg

DRUGS (9)
  1. ZOVIRAX [Suspect]
     Route: 065
  2. FORTUM [Suspect]
  3. MOPRAL [Suspect]
  4. FLUCONAZOLE [Suspect]
     Route: 065
  5. NEUPOGEN [Suspect]
     Dosage: 210MCG PER DAY
     Route: 042
     Dates: start: 20040317, end: 20040325
  6. CYCLOSPORINE [Suspect]
     Route: 065
  7. SOLU-MEDROL [Suspect]
     Route: 065
  8. TARGOCID [Suspect]
  9. RIVOTRIL [Suspect]

REACTIONS (5)
  - BRONCHOSPASM [None]
  - DYSPNOEA [None]
  - OXYGEN SATURATION DECREASED [None]
  - TACHYCARDIA [None]
  - TACHYPNOEA [None]
